FAERS Safety Report 8764512 (Version 1)
Quarter: 2012Q4

REPORT INFORMATION
  Report Type: 
  Country: JO (occurrence: JO)
  Receive Date: 20120831
  Receipt Date: 20120831
  Transmission Date: 20130627
  Serious: Yes (Death, Life-Threatening, Hospitalization, Other)
  Sender: FDA-Public Use
  Company Number: JO-ROXANE LABORATORIES, INC.-2012-RO-01763RO

PATIENT
  Age: 40 Year
  Sex: Female

DRUGS (10)
  1. QUETIAPINE FUMARATE [Suspect]
     Indication: PSYCHOTIC DISORDER
     Dosage: 300 mg
     Route: 048
  2. ALPRAZOLAM [Suspect]
     Indication: DEPRESSION
     Dosage: 1 mg
     Route: 048
  3. ALPRAZOLAM [Suspect]
     Indication: ANXIETY
  4. FLUCONAZOLE [Suspect]
     Indication: ORAL CANDIDIASIS
     Dosage: 100 mg
     Route: 048
  5. LAMOTRIGINE [Suspect]
     Indication: PSYCHOTIC DISORDER
     Dosage: 100 mg
     Route: 048
  6. MIRTAZAPINE [Suspect]
     Indication: PSYCHOTIC DISORDER
     Dosage: 15 mg
     Route: 048
  7. VENLAFAXINE [Suspect]
     Indication: PSYCHOTIC DISORDER
     Dosage: 75 mg
     Route: 048
  8. FERROUS SULFATE [Suspect]
     Indication: ANAEMIA
     Dosage: 975 mg
     Route: 048
  9. AMOXICILLIN-CLAVULA [Suspect]
     Indication: PHARYNGITIS
     Dosage: 2000 mg
  10. ACETAMINOPHEN [Suspect]
     Indication: PYREXIA
     Route: 048

REACTIONS (14)
  - Septic shock [Fatal]
  - Agranulocytosis [Fatal]
  - Multi-organ failure [Unknown]
  - Cardiac arrest [Unknown]
  - Oral candidiasis [Unknown]
  - Febrile neutropenia [Unknown]
  - Cellulitis orbital [Unknown]
  - Pharyngitis [Unknown]
  - Convulsion [Unknown]
  - Hypotension [Unknown]
  - Platelet count decreased [Unknown]
  - Aspergillus test positive [None]
  - Candida test positive [None]
  - Enterococcus test positive [None]
